FAERS Safety Report 5266273-0 (Version None)
Quarter: 2007Q1

REPORT INFORMATION
  Report Type: 
  Country: None (occurrence: None)
  Receive Date: 20070315
  Receipt Date: 20070305
  Transmission Date: 20070707
  Serious: Yes (Other)
  Sender: FDA-Public Use
  Company Number: US-MERCK-0703USA01206

PATIENT
  Age: 41 Year
  Sex: Male

DRUGS (4)
  1. CANCIDAS [Suspect]
     Indication: ASPERGILLOSIS
     Route: 065
  2. VORICONAZOLE [Concomitant]
     Indication: ASPERGILLOSIS
     Route: 065
  3. AMPHOTERICIN B [Concomitant]
     Indication: ASPERGILLOSIS
     Route: 065
  4. AMPHOTERICIN B AND CHOLESTEROL AND DISTEAROYLPHOSPHATIDYLGLYCEROL AND [Concomitant]
     Indication: ASPERGILLOSIS
     Route: 065

REACTIONS (4)
  - ANAESTHETIC COMPLICATION [None]
  - CEREBROVASCULAR DISORDER [None]
  - DIARRHOEA [None]
  - RENAL FAILURE ACUTE [None]
